FAERS Safety Report 25775281 (Version 2)
Quarter: 2025Q4

REPORT INFORMATION
  Report Type: Report from Study
  Country: US (occurrence: US)
  Receive Date: 20250909
  Receipt Date: 20251015
  Transmission Date: 20260117
  Serious: Yes (Hospitalization)
  Sender: BIOGEN
  Company Number: US-BIOGEN-2025BI01323100

PATIENT
  Sex: Male

DRUGS (1)
  1. TYSABRI [Suspect]
     Active Substance: NATALIZUMAB
     Indication: Multiple sclerosis
     Route: 050
     Dates: start: 20130911, end: 20250815

REACTIONS (2)
  - Myocardial oedema [Unknown]
  - Pulmonary oedema [Unknown]
